FAERS Safety Report 20730268 (Version 6)
Quarter: 2022Q4

REPORT INFORMATION
  Report Type: Spontaneous
  Country: US (occurrence: US)
  Receive Date: 20220420
  Receipt Date: 20221124
  Transmission Date: 20230113
  Serious: No
  Sender: FDA-Public Use
  Company Number: US-PFIZER INC-202200463985

PATIENT
  Age: 13 Year
  Sex: Male
  Weight: 40.82 kg

DRUGS (1)
  1. GENOTROPIN [Suspect]
     Active Substance: SOMATROPIN
     Indication: Short stature
     Dosage: GIVEN IN THIGHS OR STOMACH
     Dates: start: 2022

REACTIONS (5)
  - Device use issue [Unknown]
  - Device information output issue [Unknown]
  - Device leakage [Unknown]
  - Drug dose omission by device [Unknown]
  - Liquid product physical issue [Unknown]

NARRATIVE: CASE EVENT DATE: 20220301
